FAERS Safety Report 8510395-5 (Version None)
Quarter: 2012Q3

REPORT INFORMATION
  Report Type: 
  Country: None (occurrence: None)
  Receive Date: 20120713
  Receipt Date: 20120709
  Transmission Date: 20120928
  Serious: Yes (Life-Threatening)
  Sender: FDA-Public Use
  Company Number: JP-ABBOTT-12P-087-0954577-00

PATIENT
  Sex: Female
  Weight: 45.5 kg

DRUGS (8)
  1. JUZENTAIHOTO [Concomitant]
     Indication: PRODUCT USED FOR UNKNOWN INDICATION
     Route: 048
     Dates: start: 20100721
  2. VESICARE [Concomitant]
     Indication: HYPERTONIC BLADDER
     Route: 048
     Dates: start: 20080312
  3. CLARITHROMYCIN [Suspect]
     Indication: NASOPHARYNGITIS
     Route: 048
     Dates: start: 20110506
  4. LOXONIN [Suspect]
     Indication: NASOPHARYNGITIS
     Route: 048
     Dates: start: 20110506
  5. LOXONIN [Suspect]
     Indication: HEADACHE
  6. COLDRIN [Suspect]
     Indication: NASOPHARYNGITIS
     Route: 048
     Dates: start: 20110506
  7. MAGLAX [Concomitant]
     Indication: CONSTIPATION
     Route: 048
     Dates: start: 20100203
  8. ROKUMIGAN [Concomitant]
     Indication: HYPERTONIC BLADDER
     Route: 048
     Dates: start: 20100526

REACTIONS (4)
  - DRUG-INDUCED LIVER INJURY [None]
  - SERUM FERRITIN INCREASED [None]
  - APHTHOUS STOMATITIS [None]
  - LYMPHADENOPATHY [None]
